FAERS Safety Report 9255277 (Version 1)
Quarter: 2013Q2

REPORT INFORMATION
  Report Type: Spontaneous
  Country: CN (occurrence: CN)
  Receive Date: 20130425
  Receipt Date: 20130425
  Transmission Date: 20140414
  Serious: Yes (Other)
  Sender: FDA-Public Use
  Company Number: CN-BAYER-2013-050365

PATIENT
  Age: 61 Year
  Sex: Male
  Weight: 55 kg

DRUGS (3)
  1. GLUCOBAY [Suspect]
     Indication: DIABETES MELLITUS
     Dosage: 0.05 MG, TID
     Route: 048
     Dates: start: 20100101, end: 20120625
  2. GLUCOBAY [Suspect]
     Indication: DIABETES MELLITUS
     Dosage: 0.5 G, TID
     Route: 048
     Dates: start: 20120616
  3. CEFOPERAZONE SODIUM/SULBACTAM SODIUM [Concomitant]
     Dosage: 2 G, BID IVGTT
     Dates: start: 20120616

REACTIONS (1)
  - Alcohol interaction [Recovering/Resolving]
